FAERS Safety Report 8551229-2 (Version None)
Quarter: 2012Q3

REPORT INFORMATION
  Report Type: 
  Country: None (occurrence: None)
  Receive Date: 20120730
  Receipt Date: 20120719
  Transmission Date: 20120928
  Serious: Yes (Hospitalization)
  Sender: FDA-Public Use
  Company Number: IL-ELI_LILLY_AND_COMPANY-IL201207007659

PATIENT
  Sex: Female
  Weight: 55 kg

DRUGS (9)
  1. FORTEO [Suspect]
     Indication: OSTEOPOROSIS
     Dosage: 20 UG, QD
     Route: 058
     Dates: start: 20110711
  2. NEO LOTAN PLUS [Concomitant]
     Indication: HYPERTENSION
  3. AMLODIPINE [Concomitant]
     Indication: HYPERTENSION
  4. VITAMIN D [Concomitant]
  5. OMEPRADEX [Concomitant]
  6. RAFASSAL [Concomitant]
  7. LEVOTHYROXINE SODIUM [Concomitant]
  8. CALCIUM [Concomitant]
  9. ASPIRIN [Concomitant]

REACTIONS (3)
  - BACK PAIN [None]
  - PALPITATIONS [None]
  - MYALGIA [None]
